FAERS Safety Report 18152544 (Version 2)
Quarter: 2021Q1

REPORT INFORMATION
  Report Type: Spontaneous
  Country: US (occurrence: US)
  Receive Date: 20200814
  Receipt Date: 20210131
  Transmission Date: 20210419
  Serious: Yes (Hospitalization, Disabling, Other)
  Sender: FDA-Public Use
  Company Number: US-PURDUE-USA-2020-0160819

PATIENT
  Sex: Male

DRUGS (12)
  1. COUMADIN [Concomitant]
     Active Substance: WARFARIN SODIUM
     Indication: PRODUCT USED FOR UNKNOWN INDICATION
     Dosage: 2 MG, DAILY
     Route: 065
  2. TIZANIDINE HYDROCHLORIDE. [Concomitant]
     Active Substance: TIZANIDINE HYDROCHLORIDE
     Indication: PRODUCT USED FOR UNKNOWN INDICATION
     Dosage: 4 MG, HS
     Route: 065
  3. GAS?X                              /01765401/ [Concomitant]
     Indication: PRODUCT USED FOR UNKNOWN INDICATION
     Dosage: 80 MG, TID
     Route: 065
  4. SUBOXONE [Suspect]
     Active Substance: BUPRENORPHINE HYDROCHLORIDE\NALOXONE HYDROCHLORIDE
     Indication: PRODUCT USED FOR UNKNOWN INDICATION
     Dosage: UNK
     Route: 065
  5. METHADONE [Suspect]
     Active Substance: METHADONE HYDROCHLORIDE
     Indication: PRODUCT USED FOR UNKNOWN INDICATION
     Dosage: UNK
     Route: 065
  6. TAMSULOSIN HCL [Concomitant]
     Active Substance: TAMSULOSIN HYDROCHLORIDE
     Indication: PRODUCT USED FOR UNKNOWN INDICATION
     Dosage: 0.4 MG, HS
     Route: 065
  7. NICOTINE                           /01033302/ [Concomitant]
     Active Substance: NICOTINE
     Indication: PRODUCT USED FOR UNKNOWN INDICATION
     Dosage: 7 MG/HR, DAILY
     Route: 065
  8. COUMADIN [Concomitant]
     Active Substance: WARFARIN SODIUM
     Dosage: 4 MG, DAILY
     Route: 065
  9. METHYLPHENIDATE HYDROCHLORIDE. [Concomitant]
     Active Substance: METHYLPHENIDATE HYDROCHLORIDE
     Indication: PRODUCT USED FOR UNKNOWN INDICATION
     Dosage: 5 MG, BID
     Route: 065
  10. OXYCONTIN [Suspect]
     Active Substance: OXYCODONE HYDROCHLORIDE
     Indication: PRODUCT USED FOR UNKNOWN INDICATION
     Dosage: UNK
     Route: 048
  11. HEROIN [Suspect]
     Active Substance: DIAMORPHINE
     Indication: PRODUCT USED FOR UNKNOWN INDICATION
     Dosage: UNK
     Route: 065
  12. TRAZODONE HYDROCHLORIDE. [Concomitant]
     Active Substance: TRAZODONE HYDROCHLORIDE
     Indication: PRODUCT USED FOR UNKNOWN INDICATION
     Dosage: 100 MG, HS
     Route: 048

REACTIONS (31)
  - Brain injury [Unknown]
  - Deep vein thrombosis [Unknown]
  - Unresponsive to stimuli [Unknown]
  - Wheelchair user [Unknown]
  - Agitation [Unknown]
  - Cognitive disorder [Unknown]
  - Constipation [Unknown]
  - Illness [Unknown]
  - Apathy [Unknown]
  - Hypoxia [Unknown]
  - Hypotension [Unknown]
  - Anxiety [Unknown]
  - Dyspnoea [Unknown]
  - Acute respiratory distress syndrome [Unknown]
  - Insomnia [Unknown]
  - Muscle spasticity [Unknown]
  - Stress [Unknown]
  - Gait disturbance [Unknown]
  - Urinary retention [Unknown]
  - Coma [Unknown]
  - Executive dysfunction [Unknown]
  - Hospitalisation [Unknown]
  - Respiratory depression [Unknown]
  - Respiratory failure [Unknown]
  - Autonomic nervous system imbalance [Unknown]
  - Physical disability [Recovering/Resolving]
  - Haemoptysis [Unknown]
  - Overdose [Unknown]
  - Drug dependence [Recovered/Resolved]
  - Substance abuse [Unknown]
  - Depression [Unknown]

NARRATIVE: CASE EVENT DATE: 2007
